FAERS Safety Report 7897523-X (Version None)
Quarter: 2011Q4

REPORT INFORMATION
  Report Type: 
  Country: None (occurrence: None)
  Receive Date: 20111107
  Receipt Date: 20111027
  Transmission Date: 20120403
  Serious: Yes (Hospitalization, Other)
  Sender: FDA-Public Use
  Company Number: SE-PFIZER INC-2011269172

PATIENT
  Age: 68 Year
  Sex: Female

DRUGS (9)
  1. ENALAPRIL MALEATE [Suspect]
     Indication: ESSENTIAL HYPERTENSION
     Dosage: UNK
     Dates: end: 20110717
  2. NULYTELY [Concomitant]
     Route: 048
  3. METOPROLOL TARTRATE [Concomitant]
     Dosage: 100 MG, UNK
  4. TRAMADOL [Concomitant]
     Route: 065
  5. KETOGAN [Concomitant]
     Dosage: 5 MG, UNK
  6. PANTOPRAZOLE SODIUM [Suspect]
     Dosage: UNK
     Dates: end: 20110717
  7. AMLODIPINE [Concomitant]
  8. IMDUR [Concomitant]
     Dosage: 30 MG, UNK
  9. SUSCARD [Concomitant]
     Dosage: 2.5 MG, UNK
     Route: 048

REACTIONS (2)
  - TONGUE OEDEMA [None]
  - ANGIOEDEMA [None]
